FAERS Safety Report 22233997 (Version 1)
Quarter: 2023Q2

REPORT INFORMATION
  Report Type: Spontaneous
  Country: US (occurrence: None)
  Receive Date: 20230420
  Receipt Date: 20230420
  Transmission Date: 20230721
  Serious: No
  Sender: FDA-Public Use
  Company Number: US-ROCHE-3067556

PATIENT
  Sex: Male

DRUGS (1)
  1. ESBRIET [Suspect]
     Active Substance: PIRFENIDONE
     Indication: Idiopathic pulmonary fibrosis
     Dosage: 1 CAPSULE BY MOUTH 3 TIMES A DAY FOR 7 DAYS THEN 2 CAPSULES 3 TIMES A DAY FOR 7 DAYS AND THEN 3 CAPS
     Route: 048
     Dates: start: 20220302

REACTIONS (4)
  - Extrasystoles [Unknown]
  - Fatigue [Unknown]
  - Dizziness [Unknown]
  - Dyspnoea [Unknown]
